FAERS Safety Report 8012372-X (Version None)
Quarter: 2011Q4

REPORT INFORMATION
  Report Type: 
  Country: None (occurrence: None)
  Receive Date: 20111228
  Receipt Date: 20111214
  Transmission Date: 20120403
  Serious: Yes (Other)
  Sender: FDA-Public Use
  Company Number: HU-AMGEN-HUNSP2011068720

PATIENT
  Age: 46 Year
  Sex: Male
  Weight: 110 kg

DRUGS (3)
  1. ENBREL [Suspect]
     Indication: PSORIATIC ARTHROPATHY
     Dosage: 50 UG, WEEKLY
     Dates: start: 20101108, end: 20111209
  2. METHOTREXAT                        /00113801/ [Concomitant]
     Dosage: UNK
     Dates: start: 20060901
  3. NIMESULIDE [Concomitant]
     Dosage: UNK
     Dates: start: 20090601

REACTIONS (1)
  - CONGESTIVE CARDIOMYOPATHY [None]
